FAERS Safety Report 7295319-3 (Version None)
Quarter: 2011Q1

REPORT INFORMATION
  Report Type: 
  Country: None (occurrence: None)
  Receive Date: 20110203
  Receipt Date: 20110117
  Transmission Date: 20110831
  Serious: Yes (Other)
  Sender: FDA-Public Use
  Company Number: 2011-00050

PATIENT
  Age: 22 Year
  Sex: Male
  Weight: 68.0396 kg

DRUGS (1)
  1. ZICAM COLD REMEDY ORAL MIST [Suspect]
     Indication: NASOPHARYNGITIS
     Dosage: QID X 2 DAYS

REACTIONS (1)
  - PHARYNGEAL OEDEMA [None]
